FAERS Safety Report 26157032 (Version 1)
Quarter: 2025Q4

REPORT INFORMATION
  Report Type: Spontaneous
  Country: US (occurrence: US)
  Receive Date: 20251215
  Receipt Date: 20251215
  Transmission Date: 20260118
  Serious: Yes (Life-Threatening, Hospitalization, Other)
  Sender: ADARE PHARMACEUTICALS
  Company Number: US-ADAREPHARM-2025-US-000107

PATIENT
  Age: 42 Year
  Sex: Female

DRUGS (2)
  1. PROPRANOLOL [Suspect]
     Active Substance: PROPRANOLOL HYDROCHLORIDE
     Indication: Phaeochromocytoma
  2. DOXAZOSIN [Interacting]
     Active Substance: DOXAZOSIN MESYLATE
     Indication: Phaeochromocytoma

REACTIONS (2)
  - Cardiogenic shock [Recovered/Resolved]
  - Potentiating drug interaction [Recovered/Resolved]
